FAERS Safety Report 4369948-0 (Version None)
Quarter: 2004Q2

REPORT INFORMATION
  Report Type: 
  Country: None (occurrence: None)
  Receive Date: 20040525
  Receipt Date: 20040507
  Transmission Date: 20050107
  Serious: Yes (Hospitalization)
  Sender: FDA-Public Use
  Company Number: DSA_24248_2004

PATIENT
  Age: 55 Year
  Sex: Male

DRUGS (3)
  1. LORAZEPAM [Suspect]
     Dosage: 25 MG ONCE PO
     Route: 048
     Dates: start: 20040410, end: 20040410
  2. BEER [Suspect]
     Dosage: 3 BOTTLE ONCE PO
     Route: 048
     Dates: start: 20040410, end: 20040410
  3. MARCUMAR [Suspect]
     Dosage: 30 MG ONCE PO
     Route: 048
     Dates: start: 20040410, end: 20040410

REACTIONS (5)
  - BLOOD ALCOHOL INCREASED [None]
  - DEPRESSED LEVEL OF CONSCIOUSNESS [None]
  - INTENTIONAL OVERDOSE [None]
  - SOMNOLENCE [None]
  - VOMITING [None]
